FAERS Safety Report 8448347-6 (Version None)
Quarter: 2012Q2

REPORT INFORMATION
  Report Type: 
  Country: None (occurrence: None)
  Receive Date: 20120619
  Receipt Date: 20120612
  Transmission Date: 20120825
  Serious: No
  Sender: FDA-Public Use
  Company Number: US-PFIZER INC-2012113297

PATIENT
  Sex: Male
  Weight: 109 kg

DRUGS (3)
  1. HYDROCODONE [Suspect]
     Dosage: UNK
  2. PENICILLIN G POTASSIUM [Suspect]
     Dosage: UNK
  3. DEMEROL [Suspect]
     Dosage: UNK

REACTIONS (4)
  - DRUG HYPERSENSITIVITY [None]
  - INFLUENZA LIKE ILLNESS [None]
  - PYREXIA [None]
  - ABDOMINAL DISCOMFORT [None]
